FAERS Safety Report 6673001-0 (Version None)
Quarter: 2010Q2

REPORT INFORMATION
  Report Type: 
  Country: None (occurrence: None)
  Receive Date: 20100408
  Receipt Date: 20100331
  Transmission Date: 20101027
  Serious: Yes (Hospitalization)
  Sender: FDA-Public Use
  Company Number: B0641629A

PATIENT
  Sex: Female
  Weight: 80 kg

DRUGS (16)
  1. LAPATINIB [Suspect]
     Indication: BREAST CANCER
     Dosage: 1500MG PER DAY
     Route: 048
     Dates: start: 20100105
  2. PACLITAXEL [Suspect]
     Indication: BREAST CANCER
     Dosage: 80MGM2 WEEKLY
     Route: 042
     Dates: start: 20100105
  3. GRANISETRON [Concomitant]
     Indication: NAUSEA
     Dosage: 20MG PER DAY
     Dates: start: 20100104
  4. KEVATRIL [Concomitant]
     Indication: NAUSEA
     Dosage: 1MG PER DAY
     Dates: start: 20091116
  5. LOPERAMIDE [Concomitant]
     Dates: start: 20100120
  6. MCP [Concomitant]
     Indication: NAUSEA
     Dates: start: 20091023
  7. NOVAMINSULFON [Concomitant]
     Dosage: 500MG PER DAY
     Dates: start: 20091111
  8. RANITIDINE [Concomitant]
     Dates: start: 20100104
  9. TAVANIC [Concomitant]
     Indication: INFECTION
     Dosage: 500MG PER DAY
     Dates: start: 20100311
  10. TRYASOL [Concomitant]
     Indication: COUGH
     Dates: start: 20100308
  11. UROMITEXAN [Concomitant]
     Indication: INFECTION
     Dosage: 400MG PER DAY
     Dates: start: 20091023
  12. VFEND [Concomitant]
     Indication: INFECTION
     Dates: start: 20100311
  13. CEFUROXIME [Concomitant]
     Indication: INFECTION
     Dosage: 500MG PER DAY
     Dates: start: 20100223
  14. COTRIM [Concomitant]
     Indication: INFECTION
     Dates: start: 20100308
  15. DEXAMETHASONE [Concomitant]
     Indication: INFECTION
     Dosage: 4MG PER DAY
     Dates: start: 20100104
  16. FENISTIL [Concomitant]
     Dates: start: 20100104

REACTIONS (2)
  - BRONCHITIS [None]
  - INFECTION [None]
